FAERS Safety Report 23096391 (Version 1)
Quarter: 2023Q4

REPORT INFORMATION
  Report Type: Spontaneous
  Country: US (occurrence: None)
  Receive Date: 20231021
  Receipt Date: 20231021
  Transmission Date: 20240110
  Serious: Yes (Hospitalization, Disabling, Other)
  Sender: FDA-Public Use
  Company Number: None

PATIENT
  Age: 23 Year
  Sex: Male
  Weight: 150.75 kg

DRUGS (6)
  1. EFFEXOR [Suspect]
     Active Substance: VENLAFAXINE HYDROCHLORIDE
     Indication: Panic attack
     Dosage: OTHER QUANTITY : 1 TABLET(S);?
     Route: 048
     Dates: start: 20230801, end: 20230928
  2. DEVICE [Concomitant]
     Active Substance: DEVICE
  3. ALBUTEROL [Concomitant]
     Active Substance: ALBUTEROL
  4. FISH OIL [Concomitant]
     Active Substance: FISH OIL
  5. VITAMIN B [Concomitant]
     Active Substance: VITAMIN B
  6. MAGNESIUM [Concomitant]
     Active Substance: MAGNESIUM

REACTIONS (4)
  - Seizure [None]
  - Dissociation [None]
  - Visual impairment [None]
  - Suicidal ideation [None]

NARRATIVE: CASE EVENT DATE: 20230920
